FAERS Safety Report 17279817 (Version 2)
Quarter: 2020Q4

REPORT INFORMATION
  Report Type: Spontaneous
  Country: US (occurrence: US)
  Receive Date: 20200116
  Receipt Date: 20201029
  Transmission Date: 20210113
  Serious: Yes (Other)
  Sender: FDA-Public Use
  Company Number: US-009507513-1812USA001610

PATIENT
  Sex: Male

DRUGS (3)
  1. ZOSTAVAX [Suspect]
     Active Substance: VARICELLA-ZOSTER VIRUS STRAIN OKA/MERCK LIVE ANTIGEN
     Indication: PROPHYLAXIS
     Dosage: 1 DOSAGE FORM
     Route: 058
     Dates: start: 20160815
  2. STERILE DILUENT (WATER) [Suspect]
     Active Substance: WATER
     Dosage: UNK
     Route: 058
     Dates: start: 20160815
  3. TAMSULOSIN HYDROCHLORIDE. [Concomitant]
     Active Substance: TAMSULOSIN HYDROCHLORIDE
     Indication: URINARY TRACT DISORDER
     Dosage: 0.4 MILLIGRAM
     Dates: start: 20040322

REACTIONS (19)
  - Contusion [Unknown]
  - Poor quality sleep [Unknown]
  - Dizziness [Unknown]
  - Asthenia [Unknown]
  - Depression [Unknown]
  - Fatigue [Unknown]
  - Vaccination failure [Unknown]
  - Post herpetic neuralgia [Unknown]
  - Abdominal discomfort [Unknown]
  - Anxiety [Unknown]
  - Rash vesicular [Recovering/Resolving]
  - Haemorrhage [Unknown]
  - Insomnia [Unknown]
  - Dry mouth [Unknown]
  - Constipation [Unknown]
  - Fear [Unknown]
  - Dyspnoea [Recovering/Resolving]
  - Feeling cold [Unknown]
  - Herpes zoster [Recovering/Resolving]

NARRATIVE: CASE EVENT DATE: 2016
